FAERS Safety Report 11092952 (Version 1)
Quarter: 2015Q2

REPORT INFORMATION
  Report Type: Spontaneous
  Country: IN (occurrence: IN)
  Receive Date: 20150506
  Receipt Date: 20150506
  Transmission Date: 20150821
  Serious: Yes (Death)
  Sender: FDA-Public Use
  Company Number: IN-SUN PHARMACEUTICAL INDUSTRIES LTD-2015R1-96696

PATIENT
  Age: 39 Year
  Sex: Female

DRUGS (3)
  1. DOLAMIDE [Suspect]
     Active Substance: ACETAMINOPHEN\NIMESULIDE
     Indication: PAIN
  2. DOLAMIDE [Suspect]
     Active Substance: ACETAMINOPHEN\NIMESULIDE
     Indication: PYREXIA
     Dosage: 1 DF, BID
     Route: 065
  3. DOLAMIDE [Suspect]
     Active Substance: ACETAMINOPHEN\NIMESULIDE
     Indication: BACK PAIN

REACTIONS (2)
  - Acute respiratory failure [Fatal]
  - Fungal infection [Fatal]
